FAERS Safety Report 20921127 (Version 1)
Quarter: 2022Q2

REPORT INFORMATION
  Report Type: Spontaneous
  Country: US (occurrence: None)
  Receive Date: 20220606
  Receipt Date: 20220606
  Transmission Date: 20220721
  Serious: No
  Sender: FDA-Public Use
  Company Number: 2022A183302

PATIENT
  Sex: Female
  Weight: 74.8 kg

DRUGS (1)
  1. SYMBICORT [Suspect]
     Active Substance: BUDESONIDE\FORMOTEROL FUMARATE DIHYDRATE
     Indication: Asthma
     Dosage: 160/4.5MG, TWO INHALATIONS TWO TIMES A DAY
     Route: 055

REACTIONS (4)
  - Asthma [Unknown]
  - Anxiety [Unknown]
  - Device delivery system issue [Unknown]
  - Device use issue [Unknown]
